FAERS Safety Report 8463324-7 (Version None)
Quarter: 2012Q2

REPORT INFORMATION
  Report Type: 
  Country: None (occurrence: None)
  Receive Date: 20120625
  Receipt Date: 20120619
  Transmission Date: 20120825
  Serious: Yes (Other)
  Sender: FDA-Public Use
  Company Number: US-PFIZER INC-2012148027

PATIENT
  Sex: Male
  Weight: 95.238 kg

DRUGS (2)
  1. VIAGRA [Suspect]
     Indication: DYSPAREUNIA
     Dosage: UNK
     Route: 048
     Dates: start: 20040101
  2. VERAPAMIL HCL [Suspect]
     Indication: DEPRESSION
     Dosage: UNK

REACTIONS (1)
  - RENAL DISORDER [None]
